FAERS Safety Report 15265890 (Version 1)
Quarter: 2018Q3

REPORT INFORMATION
  Report Type: Spontaneous
  Country: US (occurrence: US)
  Receive Date: 20180810
  Receipt Date: 20180810
  Transmission Date: 20181010
  Serious: No
  Sender: FDA-Public Use
  Company Number: US-BAYER-2018-149692

PATIENT
  Age: 83 Year
  Sex: Male
  Weight: 76.96 kg

DRUGS (2)
  1. ALEVE [Suspect]
     Active Substance: NAPROXEN SODIUM
     Dosage: 1 DF, BID
     Route: 048
     Dates: start: 20180803, end: 20180804
  2. CHOLESTEROL [Concomitant]
     Active Substance: CHOLESTEROL

REACTIONS (1)
  - Blood urine present [Recovered/Resolved]

NARRATIVE: CASE EVENT DATE: 20180803
